FAERS Safety Report 5097596-6 (Version None)
Quarter: 2006Q3

REPORT INFORMATION
  Report Type: 
  Country: None (occurrence: None)
  Receive Date: 20060901
  Receipt Date: 20060824
  Transmission Date: 20061208
  Serious: Yes (Disabling)
  Sender: FDA-Public Use
  Company Number: HQWYE988225AUG06

PATIENT
  Age: 48 Year
  Sex: Female

DRUGS (1)
  1. ADVIL COLD AND SINUS [Suspect]
     Indication: SINUSITIS
     Dosage: ORAL
     Route: 048
     Dates: start: 20050201, end: 20060525

REACTIONS (2)
  - ANGLE CLOSURE GLAUCOMA [None]
  - NERVE INJURY [None]
